FAERS Safety Report 6567578-3 (Version None)
Quarter: 2010Q1

REPORT INFORMATION
  Report Type: 
  Country: None (occurrence: None)
  Receive Date: 20100202
  Receipt Date: 20100125
  Transmission Date: 20100710
  Serious: Yes (Other)
  Sender: FDA-Public Use
  Company Number: PHHY2010BR04514

PATIENT
  Sex: Female
  Weight: 53 kg

DRUGS (4)
  1. EXELON [Suspect]
     Indication: DEMENTIA ALZHEIMER'S TYPE
     Dosage: 9MG/5CM2, 1 PATCH PER DAY
     Route: 062
     Dates: start: 20080901
  2. EXELON [Suspect]
     Indication: MICROANGIOPATHY
     Dosage: 18MG/10CM2, 1 PATCH PER DAY
     Route: 062
     Dates: start: 20081001
  3. SEROQUEL [Concomitant]
     Indication: AGITATION
     Dosage: 25 MG, QD, 1 TABLET AT NIGHT
     Route: 048
  4. ALOIS [Concomitant]
     Indication: DEMENTIA ALZHEIMER'S TYPE
     Dosage: 10 MG, BID
     Route: 048
     Dates: start: 20090801

REACTIONS (2)
  - DISTURBANCE IN ATTENTION [None]
  - GAIT DISTURBANCE [None]
